FAERS Safety Report 21823987 (Version 1)
Quarter: 2023Q1

REPORT INFORMATION
  Report Type: Other
  Country: SA (occurrence: None)
  Receive Date: 20230105
  Receipt Date: 20230105
  Transmission Date: 20230417
  Serious: Yes (Hospitalization)
  Sender: FDA-Public Use
  Company Number: SA-ROCHE-3255507

PATIENT
  Sex: Female

DRUGS (1)
  1. RITUXIMAB [Suspect]
     Active Substance: RITUXIMAB
     Indication: Congenital cystic kidney disease
     Route: 065

REACTIONS (1)
  - Gastritis viral [Recovering/Resolving]
